FAERS Safety Report 10146889 (Version 1)
Quarter: 2014Q2

REPORT INFORMATION
  Report Type: Spontaneous
  Country: US (occurrence: US)
  Receive Date: 20140501
  Receipt Date: 20140501
  Transmission Date: 20141212
  Serious: Yes (Other)
  Sender: FDA-Public Use
  Company Number: US-GLAXOSMITHKLINE-A0761080A

PATIENT
  Age: 64 Year
  Sex: Female

DRUGS (5)
  1. LAMICTAL [Suspect]
     Indication: SCHIZOPHRENIA
     Dosage: 150MG PER DAY
     Route: 048
     Dates: start: 2007
  2. ABILIFY [Concomitant]
  3. ZOCOR [Concomitant]
  4. ACTONEL [Concomitant]
  5. UNKNOWN [Concomitant]

REACTIONS (6)
  - Hair texture abnormal [Unknown]
  - Skin disorder [Unknown]
  - Dry skin [Unknown]
  - Hair texture abnormal [Unknown]
  - Hair texture abnormal [Unknown]
  - Investigation [Unknown]
